FAERS Safety Report 7485065-5 (Version None)
Quarter: 2011Q2

REPORT INFORMATION
  Report Type: 
  Country: None (occurrence: None)
  Receive Date: 20110517
  Receipt Date: 20101112
  Transmission Date: 20111010
  Serious: No
  Sender: FDA-Public Use
  Company Number: US-BAYER-2010-004985

PATIENT
  Age: 61 Year
  Sex: Female
  Weight: 78 kg

DRUGS (4)
  1. HYDROCHLOROTHIAZIDE [Concomitant]
  2. ALEVE (CAPLET) [Suspect]
     Indication: BACK PAIN
     Dosage: 440 MG, BID
     Route: 048
     Dates: start: 20101112
  3. METOPROLOL SUCCINATE [Concomitant]
  4. LISINOPRIL [Concomitant]

REACTIONS (1)
  - NO ADVERSE EVENT [None]
